FAERS Safety Report 24646166 (Version 2)
Quarter: 2025Q4

REPORT INFORMATION
  Report Type: Spontaneous
  Country: US (occurrence: US)
  Receive Date: 20241121
  Receipt Date: 20251118
  Transmission Date: 20260117
  Serious: No
  Sender: COLLEGIUM PHARMACEUTICAL
  Company Number: US-COLLEGIUM PHARMACEUTICAL, INC.-20240200080

PATIENT

DRUGS (1)
  1. BELBUCA [Suspect]
     Active Substance: BUPRENORPHINE HYDROCHLORIDE
     Indication: Pain
     Dosage: 600 MICROGRAM, UNKNOWN
     Route: 002

REACTIONS (11)
  - Gingival bleeding [Unknown]
  - Gingival erosion [Unknown]
  - Tooth discolouration [Unknown]
  - Lymphadenopathy [Unknown]
  - Oropharyngeal pain [Unknown]
  - Swelling [Unknown]
  - Tooth loss [Unknown]
  - Tooth fracture [Unknown]
  - Dental caries [Unknown]
  - Headache [Unknown]
  - Product physical issue [Unknown]

NARRATIVE: CASE EVENT DATE: 20240101
